FAERS Safety Report 9300923 (Version 1)
Quarter: 2013Q2

REPORT INFORMATION
  Report Type: Spontaneous
  Country: ES (occurrence: ES)
  Receive Date: 20130521
  Receipt Date: 20130521
  Transmission Date: 20140414
  Serious: Yes (Other)
  Sender: FDA-Public Use
  Company Number: ES-009507513-1305ESP008446

PATIENT
  Age: 49 Year
  Sex: Male

DRUGS (3)
  1. VICTRELIS [Suspect]
     Indication: HEPATITIS C
     Route: 065
     Dates: start: 20130302
  2. PEGASYS [Interacting]
     Indication: HEPATITIS C
     Route: 065
     Dates: start: 20130201
  3. RIBAVIRIN [Interacting]
     Indication: HEPATITIS C
     Route: 065
     Dates: start: 20130201

REACTIONS (1)
  - Pneumonia [Recovered/Resolved]
